FAERS Safety Report 9344648 (Version 1)
Quarter: 2013Q2

REPORT INFORMATION
  Report Type: Report from Study
  Country: IN (occurrence: IN)
  Receive Date: 20130612
  Receipt Date: 20130612
  Transmission Date: 20140414
  Serious: Yes (Death, Other)
  Sender: FDA-Public Use
  Company Number: PHHY2013IN059630

PATIENT
  Age: 46 Year
  Sex: Male

DRUGS (1)
  1. SEBIVO [Suspect]
     Indication: CHRONIC HEPATITIS B
     Dosage: 600 MG DAILY FOR PAST 6 MONTHS
     Route: 048
     Dates: start: 20121225, end: 20130403

REACTIONS (5)
  - Hepatic cirrhosis [Fatal]
  - Ascites [Unknown]
  - Hepatic encephalopathy [Unknown]
  - Confusional state [Unknown]
  - Loss of consciousness [Unknown]
